FAERS Safety Report 18529858 (Version 1)
Quarter: 2020Q4

REPORT INFORMATION
  Report Type: Spontaneous
  Country: US (occurrence: US)
  Receive Date: 20201120
  Receipt Date: 20201120
  Transmission Date: 20210114
  Serious: No
  Sender: FDA-Public Use
  Company Number: US-NOVOPROD-752002

PATIENT
  Age: 16 Year
  Sex: Female

DRUGS (1)
  1. NOVOLOG [Suspect]
     Active Substance: INSULIN ASPART
     Indication: TYPE 1 DIABETES MELLITUS
     Dosage: 100 UNITS
     Route: 058

REACTIONS (4)
  - Feeling abnormal [Unknown]
  - Blood glucose increased [Recovered/Resolved]
  - Device failure [Unknown]
  - Device malfunction [Unknown]
